FAERS Safety Report 16421501 (Version 1)
Quarter: 2019Q2

REPORT INFORMATION
  Report Type: Other
  Country: CN (occurrence: CN)
  Receive Date: 20190612
  Receipt Date: 20190612
  Transmission Date: 20190711
  Serious: Yes (Hospitalization, Other)
  Sender: FDA-Public Use
  Company Number: CN-VISTAPHARM, INC.-VER201906-000358

PATIENT
  Age: 53 Year
  Sex: Female

DRUGS (6)
  1. MORPHINE [Suspect]
     Active Substance: MORPHINE
     Dosage: 12 MG/ML (IN NORMAL SALINE)
     Route: 037
  2. MORPHINE [Suspect]
     Active Substance: MORPHINE
     Indication: CANCER PAIN
     Dosage: 1 MG/ML (IN NORMAL SALINE)
     Route: 037
  3. ROPIVACAINE. [Suspect]
     Active Substance: ROPIVACAINE HYDROCHLORIDE
     Indication: CANCER PAIN
     Dosage: 1 MG/ML (IN NORMAL SALINE)
     Route: 037
  4. ROPIVACAINE. [Suspect]
     Active Substance: ROPIVACAINE HYDROCHLORIDE
     Dosage: 6 MG/ML (IN NORMAL SALINE)
     Route: 037
  5. GABAPENTIN. [Concomitant]
     Active Substance: GABAPENTIN
     Indication: CANCER PAIN
     Dosage: 900 MG TID
  6. OXYCODONE [Suspect]
     Active Substance: OXYCODONE
     Indication: CANCER PAIN
     Dosage: 280 MG EVERY 12 HOURS
     Route: 048

REACTIONS (4)
  - Myoclonus [Unknown]
  - Drug interaction [Unknown]
  - Drug ineffective [Unknown]
  - Overdose [Unknown]
